FAERS Safety Report 9516179 (Version 2)
Quarter: 2013Q4

REPORT INFORMATION
  Report Type: Spontaneous
  Country: JP (occurrence: JP)
  Receive Date: 20130911
  Receipt Date: 20131003
  Transmission Date: 20140711
  Serious: Yes (Hospitalization)
  Sender: FDA-Public Use
  Company Number: JP-ASTRAZENECA-2013SE67644

PATIENT
  Age: 33 Year
  Sex: Female
  Weight: 63 kg

DRUGS (16)
  1. MARCAIN SPINAL [Suspect]
     Indication: SPINAL ANAESTHESIA
     Route: 029
     Dates: start: 20130821, end: 20130821
  2. XYLOCAINE INJECTION [Suspect]
     Indication: LOCAL ANAESTHESIA
     Route: 058
     Dates: start: 20130821, end: 20130821
  3. POPSCAINE [Suspect]
     Indication: POSTOPERATIVE ANALGESIA
     Route: 008
     Dates: start: 20130821, end: 20130822
  4. EPHEDRIN [Concomitant]
     Indication: BLOOD PRESSURE DECREASED
     Route: 042
     Dates: start: 20130821, end: 20130821
  5. ATROPINE [Concomitant]
     Indication: BRADYCARDIA
     Route: 042
     Dates: start: 20130821, end: 20130821
  6. OXYGEN [Concomitant]
     Indication: HYPOXIA
     Dosage: 3 L/MIN.
     Route: 055
     Dates: start: 20130821, end: 20130821
  7. ATONIN-O [Concomitant]
     Indication: UTERINE HYPOTONUS
     Route: 030
     Dates: start: 20130821, end: 20130821
  8. DORMICUM [Concomitant]
     Indication: SEDATION
     Route: 042
     Dates: start: 20130821, end: 20130821
  9. PROPOFOL [Concomitant]
     Indication: SEDATION
     Dosage: 80 MG/HOUR TO 120 MG/HOUR
     Route: 042
     Dates: start: 20130821, end: 20130821
  10. FENTANYL [Concomitant]
     Indication: ANALGESIC THERAPY
     Route: 042
     Dates: start: 20130821, end: 20130821
  11. FENTANYL [Concomitant]
     Indication: POSTOPERATIVE ANALGESIA
     Route: 042
     Dates: start: 20130821, end: 20130821
  12. FENTANYL [Concomitant]
     Indication: ANALGESIC THERAPY
     Route: 008
     Dates: start: 20130821, end: 20130821
  13. FENTANYL [Concomitant]
     Indication: POSTOPERATIVE ANALGESIA
     Route: 008
     Dates: start: 20130821, end: 20130821
  14. FENTANYL [Concomitant]
     Indication: ANALGESIC THERAPY
     Dosage: 0.00083% 6 ML/HOUR
     Route: 008
     Dates: start: 20130821, end: 20130822
  15. FENTANYL [Concomitant]
     Indication: POSTOPERATIVE ANALGESIA
     Dosage: 0.00083% 6 ML/HOUR
     Route: 008
     Dates: start: 20130821, end: 20130822
  16. DROLEPTAN [Concomitant]
     Indication: VOMITING
     Dosage: ABOUT 0.002% 6 ML/HOUR
     Route: 008
     Dates: start: 20130821, end: 20130822

REACTIONS (5)
  - Cauda equina syndrome [Recovering/Resolving]
  - Sensory disturbance [Recovered/Resolved]
  - Paralysis [Recovered/Resolved]
  - Muscular weakness [Not Recovered/Not Resolved]
  - Post lumbar puncture syndrome [Unknown]
